FAERS Safety Report 13702411 (Version 3)
Quarter: 2017Q3

REPORT INFORMATION
  Report Type: Spontaneous
  Country: DE (occurrence: DE)
  Receive Date: 20170629
  Receipt Date: 20170720
  Transmission Date: 20171127
  Serious: Yes (Hospitalization)
  Sender: FDA-Public Use
  Company Number: DE-TEVA-783307GER

PATIENT
  Age: 41 Year
  Sex: Male
  Weight: 90 kg

DRUGS (4)
  1. RIVAROXABAN [Concomitant]
     Active Substance: RIVAROXABAN
     Indication: DEEP VEIN THROMBOSIS
     Dosage: 20 MILLIGRAM DAILY; ONGOING
     Route: 048
  2. OLANZAPIN PUREN 15MG ORODISPERSIBLE TABLET [Suspect]
     Active Substance: OLANZAPINE
     Indication: SCHIZOPHRENIA
     Dosage: 30 MILLIGRAM DAILY; FORM OF ADMINISTRATION: ORODISPERSIBLE TABLET
     Route: 048
     Dates: start: 20170504, end: 20170509
  3. LORAZEPAM. [Concomitant]
     Active Substance: LORAZEPAM
     Indication: TENSION
     Dosage: 16 MILLIGRAM DAILY; ONGOING
  4. L-POLAFLUX [Interacting]
     Active Substance: LEVOMETHADONE HYDROCHLORIDE
     Indication: DRUG USE DISORDER
     Dosage: 50 MILLIGRAM DAILY;
     Route: 048

REACTIONS (14)
  - Pulse absent [Recovering/Resolving]
  - Scrotal swelling [Recovering/Resolving]
  - Skin lesion [Recovering/Resolving]
  - Sinus tachycardia [Recovering/Resolving]
  - Swelling [Recovering/Resolving]
  - Drug interaction [Recovering/Resolving]
  - Oedema peripheral [Recovering/Resolving]
  - Lymphadenitis [Recovered/Resolved]
  - Erythema [Recovering/Resolving]
  - Gait inability [Recovering/Resolving]
  - Splenomegaly [Recovering/Resolving]
  - Lymphoedema [Recovering/Resolving]
  - Skin erosion [Recovered/Resolved]
  - Erysipelas [Recovered/Resolved]
